FAERS Safety Report 11987449 (Version 1)
Quarter: 2016Q1

REPORT INFORMATION
  Report Type: Spontaneous
  Country: US (occurrence: US)
  Receive Date: 20160202
  Receipt Date: 20160202
  Transmission Date: 20160526
  Serious: No
  Sender: FDA-Public Use
  Company Number: US-UCBSA-2014022032

PATIENT
  Age: 5 Year
  Sex: Female

DRUGS (2)
  1. KEPPRA [Suspect]
     Active Substance: LEVETIRACETAM
     Indication: SEIZURE
     Dosage: UNK
  2. KEPPRA [Suspect]
     Active Substance: LEVETIRACETAM
     Dosage: 4 ML, 2X/DAY (BID) INCREASED

REACTIONS (4)
  - Influenza [Unknown]
  - Fatigue [Unknown]
  - Drug level decreased [Unknown]
  - Hypersomnia [Unknown]
